FAERS Safety Report 4895915-4 (Version None)
Quarter: 2006Q1

REPORT INFORMATION
  Report Type: 
  Country: None (occurrence: None)
  Receive Date: 20060130
  Receipt Date: 20051004
  Transmission Date: 20060701
  Serious: Yes (Disabling, Other)
  Sender: FDA-Public Use
  Company Number: US-MERCK-0510USA02208

PATIENT
  Sex: Female
  Weight: 75 kg

DRUGS (2)
  1. VIOXX [Suspect]
     Indication: ARTHRITIS
     Route: 048
     Dates: start: 19990101, end: 20020401
  2. ALEVE [Concomitant]
     Route: 065

REACTIONS (2)
  - ISCHAEMIC STROKE [None]
  - MULTIPLE SCLEROSIS [None]
